FAERS Safety Report 5221191-9 (Version None)
Quarter: 2007Q1

REPORT INFORMATION
  Report Type: 
  Country: None (occurrence: None)
  Receive Date: 20070126
  Receipt Date: 20070123
  Transmission Date: 20070707
  Serious: Yes (Death)
  Sender: FDA-Public Use
  Company Number: TH-ROXANE LABORATORIES, INC-2007-BP-01223RO

PATIENT
  Sex: Male
  Weight: 1.66 kg

DRUGS (2)
  1. DEXAMETHASONE TAB [Suspect]
     Indication: MATERNAL THERAPY TO ENHANCE FOETAL LUNG MATURITY
     Dosage: PLACENTAL TRANSFER
     Route: 064
  2. TERBUTALINE SULFATE [Suspect]
     Indication: PREMATURE LABOUR
     Dosage: PLACENTAL TRANSFER
     Route: 064

REACTIONS (4)
  - ANEURYSM RUPTURED [None]
  - BRADYCARDIA FOETAL [None]
  - INTRA-UTERINE DEATH [None]
  - TACHYCARDIA FOETAL [None]
